FAERS Safety Report 22181118 (Version 1)
Quarter: 2023Q2

REPORT INFORMATION
  Report Type: Spontaneous
  Country: None (occurrence: CA)
  Receive Date: 20230406
  Receipt Date: 20230406
  Transmission Date: 20230722
  Serious: Yes (Other)
  Sender: FDA-Public Use
  Company Number: CA-B.Braun Medical Inc.-2139974

PATIENT
  Age: 24 Month
  Sex: Male
  Weight: 13 kg

DRUGS (1)
  1. SODIUM CHLORIDE [Suspect]
     Active Substance: SODIUM CHLORIDE
     Route: 048

REACTIONS (5)
  - Off label use [Recovered/Resolved]
  - Blood methaemoglobin present [Recovered/Resolved]
  - Oxygen saturation decreased [Recovered/Resolved]
  - Retching [Recovered/Resolved]
  - Vomiting [Recovered/Resolved]
